FAERS Safety Report 12726217 (Version 5)
Quarter: 2020Q3

REPORT INFORMATION
  Report Type: Report from Study
  Country: US (occurrence: US)
  Receive Date: 20160908
  Receipt Date: 20200722
  Transmission Date: 20201102
  Serious: Yes (Disabling, Other)
  Sender: FDA-Public Use
  Company Number: US-SA-2016SA119086

PATIENT

DRUGS (3)
  1. ALEMTUZUMAB [Suspect]
     Active Substance: ALEMTUZUMAB
     Dosage: 12 MG,QD
     Route: 041
     Dates: start: 20170626, end: 20170628
  2. ALEMTUZUMAB [Suspect]
     Active Substance: ALEMTUZUMAB
     Indication: MULTIPLE SCLEROSIS
     Dosage: 12 MG,QD
     Route: 041
     Dates: start: 20160620, end: 20160624
  3. METHYLPREDNISOLONE. [Concomitant]
     Active Substance: METHYLPREDNISOLONE
     Dosage: UNK
     Route: 065

REACTIONS (13)
  - Nasal pruritus [Recovered/Resolved]
  - Unevaluable event [Not Recovered/Not Resolved]
  - Asthenia [Unknown]
  - Feeling abnormal [Recovering/Resolving]
  - Tremor [Not Recovered/Not Resolved]
  - Epistaxis [Recovered/Resolved]
  - Loss of consciousness [Unknown]
  - Poor venous access [Not Recovered/Not Resolved]
  - Diarrhoea [Recovered/Resolved]
  - Balance disorder [Recovering/Resolving]
  - Mobility decreased [Recovering/Resolving]
  - Nasal congestion [Recovered/Resolved]
  - Abdominal distension [Not Recovered/Not Resolved]

NARRATIVE: CASE EVENT DATE: 2016
